FAERS Safety Report 15280919 (Version 1)
Quarter: 2018Q3

REPORT INFORMATION
  Report Type: Spontaneous
  Country: US (occurrence: US)
  Receive Date: 20180815
  Receipt Date: 20180815
  Transmission Date: 20181010
  Serious: No
  Sender: FDA-Public Use
  Company Number: US-SA-2018SA216559

PATIENT
  Age: 66 Year
  Sex: Male

DRUGS (1)
  1. ELOXATIN [Suspect]
     Active Substance: OXALIPLATIN
     Indication: COLON CANCER
     Dosage: UNK240 MG 130/M2

REACTIONS (2)
  - Aphasia [Not Recovered/Not Resolved]
  - Productive cough [Not Recovered/Not Resolved]
